FAERS Safety Report 25790837 (Version 1)
Quarter: 2025Q3

REPORT INFORMATION
  Report Type: Spontaneous
  Country: EU (occurrence: EU)
  Receive Date: 20250911
  Receipt Date: 20250911
  Transmission Date: 20251021
  Serious: Yes (Hospitalization, Other)
  Sender: AMGEN
  Company Number: EU-AMGEN-POLSP2025177921

PATIENT
  Age: 72 Year
  Sex: Female

DRUGS (3)
  1. UPLIZNA [Suspect]
     Active Substance: INEBILIZUMAB-CDON
     Indication: Neuromyelitis optica spectrum disorder
     Route: 065
     Dates: start: 201802
  2. UPLIZNA [Suspect]
     Active Substance: INEBILIZUMAB-CDON
     Route: 065
     Dates: start: 202103
  3. UPLIZNA [Suspect]
     Active Substance: INEBILIZUMAB-CDON
     Route: 065
     Dates: start: 202104

REACTIONS (3)
  - COVID-19 [Unknown]
  - Neuroborreliosis [Unknown]
  - Hyponatraemia [Unknown]
